FAERS Safety Report 5694953-1 (Version None)
Quarter: 2008Q2

REPORT INFORMATION
  Report Type: 
  Country: None (occurrence: None)
  Receive Date: 20080404
  Receipt Date: 20080325
  Transmission Date: 20081010
  Serious: Yes (Other)
  Sender: FDA-Public Use
  Company Number: US-PFIZER INC-2008026805

PATIENT
  Sex: Female
  Weight: 47.6 kg

DRUGS (5)
  1. CHANTIX [Suspect]
     Indication: SMOKING CESSATION THERAPY
     Route: 048
     Dates: start: 20080312, end: 20080321
  2. DILANTIN [Suspect]
     Indication: CONVULSION
     Route: 048
  3. PHENOBARBITAL TAB [Concomitant]
  4. TOPAMAX [Concomitant]
  5. SYNTHROID [Concomitant]

REACTIONS (8)
  - CONVULSION [None]
  - FATIGUE [None]
  - INSOMNIA [None]
  - IRRITABILITY [None]
  - MALAISE [None]
  - MUSCLE TWITCHING [None]
  - NAUSEA [None]
  - NERVOUSNESS [None]
